FAERS Safety Report 19450080 (Version 2)
Quarter: 2022Q2

REPORT INFORMATION
  Report Type: Report from Study
  Country: CA (occurrence: CA)
  Receive Date: 20210622
  Receipt Date: 20220606
  Transmission Date: 20220721
  Serious: Yes (Other)
  Sender: FDA-Public Use
  Company Number: CA-PFIZER INC-2021671097

PATIENT
  Age: 89 Year
  Sex: Female

DRUGS (2)
  1. KETOROLAC TROMETHAMINE [Interacting]
     Active Substance: KETOROLAC TROMETHAMINE
     Route: 065
  2. IMBRUVICA [Interacting]
     Active Substance: IBRUTINIB
     Route: 048

REACTIONS (3)
  - Drug interaction [Recovered/Resolved]
  - Haemorrhage [Recovered/Resolved]
  - Rash macular [Recovered/Resolved]
